FAERS Safety Report 4948152-9 (Version None)
Quarter: 2006Q1

REPORT INFORMATION
  Report Type: 
  Country: None (occurrence: None)
  Receive Date: 20060314
  Receipt Date: 20060223
  Transmission Date: 20060701
  Serious: Yes (Congenital Anomaly)
  Sender: FDA-Public Use
  Company Number: 2064

PATIENT
  Sex: Female

DRUGS (1)
  1. AMNESTEEM [Suspect]
     Dates: start: 20040610, end: 20040701

REACTIONS (8)
  - CONGENITAL CENTRAL NERVOUS SYSTEM ANOMALY [None]
  - CONVULSION [None]
  - DRUG EXPOSURE DURING PREGNANCY [None]
  - HYDROCEPHALUS [None]
  - INFREQUENT BOWEL MOVEMENTS [None]
  - MUSCLE TWITCHING [None]
  - PERIVENTRICULAR LEUKOMALACIA [None]
  - URINE OUTPUT DECREASED [None]
